FAERS Safety Report 7986550-X (Version None)
Quarter: 2011Q4

REPORT INFORMATION
  Report Type: 
  Country: None (occurrence: None)
  Receive Date: 20111216
  Receipt Date: 20111206
  Transmission Date: 20120403
  Serious: Yes (Other)
  Sender: FDA-Public Use
  Company Number: US-JNJFOC-20111202727

PATIENT
  Sex: Female
  Weight: 122.47 kg

DRUGS (2)
  1. ARAVA [Concomitant]
     Indication: ARTHRITIS
     Route: 048
  2. REMICADE [Suspect]
     Indication: RHEUMATOID ARTHRITIS
     Route: 042
     Dates: start: 20100101, end: 20110101

REACTIONS (6)
  - RESPIRATORY DISORDER [None]
  - INFUSION RELATED REACTION [None]
  - URTICARIA [None]
  - MALAISE [None]
  - HEADACHE [None]
  - NAUSEA [None]
